FAERS Safety Report 15612416 (Version 1)
Quarter: 2018Q4

REPORT INFORMATION
  Report Type: Spontaneous
  Country: PS (occurrence: PS)
  Receive Date: 20181113
  Receipt Date: 20181113
  Transmission Date: 20190205
  Serious: Yes (Hospitalization)
  Sender: FDA-Public Use
  Company Number: PS-ASTRAZENECA-2018SF46163

PATIENT
  Sex: Male
  Weight: 78 kg

DRUGS (3)
  1. TRITACE [Concomitant]
     Active Substance: RAMIPRIL
     Dosage: 5.0MG UNKNOWN
     Route: 048
  2. METFORMIN [Concomitant]
     Active Substance: METFORMIN HYDROCHLORIDE
     Indication: DIABETES MELLITUS
     Dosage: 850.0MG UNKNOWN
     Route: 048
  3. FORXIGA [Suspect]
     Active Substance: DAPAGLIFLOZIN
     Indication: TYPE 2 DIABETES MELLITUS
     Route: 048
     Dates: start: 20180601

REACTIONS (3)
  - Diabetic ketoacidosis [Unknown]
  - Renal impairment [Recovered/Resolved with Sequelae]
  - Dehydration [Recovered/Resolved]
